FAERS Safety Report 21346517 (Version 1)
Quarter: 2022Q3

REPORT INFORMATION
  Report Type: Spontaneous
  Country: FR (occurrence: FR)
  Receive Date: 20220917
  Receipt Date: 20220917
  Transmission Date: 20221027
  Serious: Yes (Other)
  Sender: FDA-Public Use
  Company Number: FR-STRIDES ARCOLAB LIMITED-2022SP011732

PATIENT
  Sex: Male

DRUGS (8)
  1. TACROLIMUS [Interacting]
     Active Substance: TACROLIMUS
     Indication: Renal transplant
     Dosage: 0.5 MILLIGRAM (TWICE A DAY)
     Route: 065
  2. TACROLIMUS [Interacting]
     Active Substance: TACROLIMUS
     Indication: Fabry^s disease
  3. MYCOPHENOLATE MOFETIL [Interacting]
     Active Substance: MYCOPHENOLATE MOFETIL
     Indication: Renal transplant
     Dosage: 500 MILLIGRAM ONCE A DAY
     Route: 065
  4. MYCOPHENOLATE MOFETIL [Interacting]
     Active Substance: MYCOPHENOLATE MOFETIL
     Indication: Fabry^s disease
  5. COMIRNATY [Interacting]
     Active Substance: TOZINAMERAN
     Indication: COVID-19 immunisation
     Dosage: UNK, SINGLE, ADMINISTERED FIRST DOSE.
     Route: 065
     Dates: start: 20210121
  6. COMIRNATY [Interacting]
     Active Substance: TOZINAMERAN
     Dosage: UNK SINGLE (ADMINISTERED SECOND DOSE)
     Route: 065
     Dates: start: 20210218
  7. COMIRNATY [Interacting]
     Active Substance: TOZINAMERAN
     Dosage: UNK SINGLE (ADMINISTERED THIRD DOSE)
     Route: 065
     Dates: start: 20210525
  8. AGALSIDASE BETA [Concomitant]
     Active Substance: AGALSIDASE BETA
     Indication: Fabry^s disease
     Dosage: 1 MILLIGRAM/KILOGRAM (ADMINISTERED ON EVERY OTHER WEEK)
     Route: 065
     Dates: start: 2012

REACTIONS (3)
  - Drug interaction [Unknown]
  - Seroconversion test negative [Unknown]
  - Off label use [Unknown]

NARRATIVE: CASE EVENT DATE: 20210101
